FAERS Safety Report 9738910 (Version 2)
Quarter: 2014Q1

REPORT INFORMATION
  Report Type: Spontaneous
  Country: US (occurrence: US)
  Receive Date: 20131209
  Receipt Date: 20140320
  Transmission Date: 20141002
  Serious: Yes (Other)
  Sender: FDA-Public Use
  Company Number: US-PFIZER INC-2013348953

PATIENT
  Age: 53 Year
  Sex: Female

DRUGS (7)
  1. SOMAVERT [Suspect]
     Indication: ACROMEGALY
     Dosage: 10 MG, DAILY
     Route: 058
  2. SOMAVERT [Suspect]
     Dosage: 20 MG, 1X/DAY
     Route: 058
     Dates: start: 20140102
  3. CRESTOR [Concomitant]
     Dosage: UNK
  4. METFORMIN [Concomitant]
     Dosage: UNK
  5. BENAZEPRIL [Concomitant]
     Dosage: UNK
  6. SERTRALINE [Concomitant]
     Dosage: UNK
  7. ZYRTEC [Concomitant]
     Dosage: UNK

REACTIONS (5)
  - Weight increased [Unknown]
  - Fatigue [Unknown]
  - Headache [Unknown]
  - Feeling abnormal [Unknown]
  - Affect lability [Unknown]
